FAERS Safety Report 12622411 (Version 6)
Quarter: 2017Q2

REPORT INFORMATION
  Report Type: Report from Study
  Country: CA (occurrence: CA)
  Receive Date: 20160804
  Receipt Date: 20170426
  Transmission Date: 20170830
  Serious: Yes (Other)
  Sender: FDA-Public Use
  Company Number: CA-UCBSA-2016028796

PATIENT
  Age: 65 Year
  Sex: Female

DRUGS (9)
  1. CERTOLIZUMAB PEGOL PSA [Suspect]
     Active Substance: CERTOLIZUMAB PEGOL
     Dosage: 200 MG, EV 2 WEEKS(QOW)
     Route: 058
     Dates: start: 20151116, end: 20170327
  2. CEPHALEX [Concomitant]
     Indication: DERMATITIS
     Dosage: 500 MG, 4X/DAY (QID)
     Dates: start: 2016
  3. CEPHADROXIL [Concomitant]
     Indication: PRODUCT USED FOR UNKNOWN INDICATION
  4. NEUTROGENA TGEL THERAPEUTIC [Concomitant]
     Active Substance: COAL TAR
     Indication: PRODUCT USED FOR UNKNOWN INDICATION
  5. CLOBETASOL [Concomitant]
     Active Substance: CLOBETASOL
     Indication: PSORIASIS
     Dosage: UNK
     Dates: start: 2016
  6. METHOTREXATE. [Suspect]
     Active Substance: METHOTREXATE
     Indication: PRODUCT USED FOR UNKNOWN INDICATION
     Dosage: MONTHLY (QM)
  7. CERTOLIZUMAB PEGOL PSA [Suspect]
     Active Substance: CERTOLIZUMAB PEGOL
     Indication: PSORIATIC ARTHROPATHY
     Dosage: 400 MG, EV 2 WEEKS(QOW)X3
     Route: 058
     Dates: start: 20150918, end: 20151102
  8. CLAVULIN [Concomitant]
     Active Substance: AMOXICILLIN\CLAVULANIC ACID
     Indication: SINUSITIS
  9. AVELOX [Concomitant]
     Active Substance: MOXIFLOXACIN HYDROCHLORIDE
     Indication: SINUSITIS

REACTIONS (7)
  - Psoriasis [Not Recovered/Not Resolved]
  - Psoriatic arthropathy [Recovered/Resolved]
  - Bursitis [Unknown]
  - Sinusitis [Not Recovered/Not Resolved]
  - Dermatitis [Recovered/Resolved]
  - Bronchitis [Unknown]
  - Localised infection [Recovered/Resolved]

NARRATIVE: CASE EVENT DATE: 2016
